FAERS Safety Report 7027766-9 (Version None)
Quarter: 2010Q4

REPORT INFORMATION
  Report Type: 
  Country: None (occurrence: None)
  Receive Date: 20101004
  Receipt Date: 20101004
  Transmission Date: 20110411
  Serious: No
  Sender: FDA-Public Use
  Company Number: None

PATIENT
  Age: 73 Year
  Sex: Female
  Weight: 60.3284 kg

DRUGS (1)
  1. KLOR-CON M10 [Suspect]
     Indication: BLOOD POTASSIUM DECREASED
     Dosage: 1 PILL 2 TIME A DAY ORAL EVERY DAY
     Route: 048

REACTIONS (1)
  - MEDICATION RESIDUE [None]
